FAERS Safety Report 6128329-X (Version None)
Quarter: 2009Q1

REPORT INFORMATION
  Report Type: 
  Country: None (occurrence: None)
  Receive Date: 20090323
  Receipt Date: 20090312
  Transmission Date: 20090719
  Serious: Yes (Life-Threatening)
  Sender: FDA-Public Use
  Company Number: B0530654A

PATIENT
  Age: 53 Year
  Sex: Male
  Weight: 63 kg

DRUGS (15)
  1. PAXIL [Suspect]
     Indication: DEPRESSION
     Dosage: 10MG PER DAY
     Route: 048
     Dates: start: 20080513, end: 20080527
  2. PAXIL [Suspect]
     Dosage: 20MG PER DAY
     Route: 048
     Dates: start: 20080528, end: 20080623
  3. PAXIL [Suspect]
     Dosage: 30MG PER DAY
     Route: 048
     Dates: start: 20080624, end: 20080707
  4. CALONAL [Suspect]
     Indication: ANALGESIA
     Dosage: 200MG TWICE PER DAY
     Route: 065
     Dates: start: 20080702, end: 20080702
  5. SOLANAX [Concomitant]
     Indication: HYPERVENTILATION
     Route: 048
     Dates: start: 20080610
  6. AMLODIN [Concomitant]
     Indication: HYPERTENSION
     Route: 048
     Dates: start: 20070726
  7. TAKEPRON [Concomitant]
     Route: 048
     Dates: start: 20070726
  8. FUROSEMIDE [Concomitant]
     Indication: HYPERTENSION
     Route: 065
     Dates: start: 20070726
  9. PRECIPITATED CALCIUM CARBONATE [Concomitant]
     Dosage: 300MG PER DAY
     Route: 048
     Dates: start: 20050701
  10. MARZULENE-S [Concomitant]
     Route: 048
     Dates: start: 20070726
  11. SLOW-K [Concomitant]
     Route: 048
     Dates: start: 20070726
  12. BIOFERMIN [Concomitant]
     Dosage: 3G PER DAY
     Route: 048
     Dates: start: 20070726
  13. VITAMEDIN [Concomitant]
     Dosage: 75MG PER DAY
     Route: 048
     Dates: start: 20070606
  14. LOPEMIN [Concomitant]
     Route: 048
     Dates: start: 20070725
  15. LENDORMIN [Concomitant]
     Indication: INSOMNIA
     Dosage: .25MG PER DAY
     Route: 048
     Dates: start: 20071113

REACTIONS (30)
  - ALANINE AMINOTRANSFERASE INCREASED [None]
  - ASPARTATE AMINOTRANSFERASE INCREASED [None]
  - ASTHENIA [None]
  - AZOTAEMIA [None]
  - BEDRIDDEN [None]
  - BLOOD ALBUMIN DECREASED [None]
  - BLOOD ALKALINE PHOSPHATASE INCREASED [None]
  - BLOOD BILIRUBIN DECREASED [None]
  - BLOOD CREATINE PHOSPHOKINASE INCREASED [None]
  - BLOOD CREATINE PHOSPHOKINASE MB INCREASED [None]
  - BLOOD CREATININE INCREASED [None]
  - BLOOD GLUCOSE INCREASED [None]
  - BLOOD LACTATE DEHYDROGENASE INCREASED [None]
  - BLOOD POTASSIUM DECREASED [None]
  - BLOOD SODIUM DECREASED [None]
  - C-REACTIVE PROTEIN INCREASED [None]
  - CARDIO-RESPIRATORY ARREST [None]
  - DECREASED APPETITE [None]
  - DEPRESSED LEVEL OF CONSCIOUSNESS [None]
  - HAEMOGLOBIN DECREASED [None]
  - HEPATIC ENCEPHALOPATHY [None]
  - HEPATIC FAILURE [None]
  - INTERNATIONAL NORMALISED RATIO INCREASED [None]
  - MALAISE [None]
  - MEMORY IMPAIRMENT [None]
  - MYOGLOBIN BLOOD INCREASED [None]
  - PLATELET COUNT DECREASED [None]
  - PROTHROMBIN TIME PROLONGED [None]
  - RHABDOMYOLYSIS [None]
  - WHITE BLOOD CELL COUNT INCREASED [None]
